FAERS Safety Report 6145656-0 (Version None)
Quarter: 2009Q2

REPORT INFORMATION
  Report Type: 
  Country: None (occurrence: None)
  Receive Date: 20090406
  Receipt Date: 20090406
  Transmission Date: 20091009
  Serious: Yes (Life-Threatening, Disabling, Other)
  Sender: FDA-Public Use
  Company Number: None

PATIENT
  Sex: Female
  Weight: 74.3899 kg

DRUGS (2)
  1. RISPERDAL CONSTA [Suspect]
     Indication: BIPOLAR DISORDER
     Dosage: HS 25 MG IM
     Route: 030
     Dates: start: 20050101
  2. SEROQUEL [Suspect]
     Indication: BIPOLAR DISORDER
     Dosage: 1000 MG ORAL
     Route: 048
     Dates: end: 20060101

REACTIONS (10)
  - ACTIVITIES OF DAILY LIVING IMPAIRED [None]
  - CONTUSION [None]
  - DELUSION [None]
  - DEPRESSION [None]
  - EXPOSURE TO TOXIC AGENT [None]
  - FALL [None]
  - FLASHBACK [None]
  - HALLUCINATIONS, MIXED [None]
  - LOSS OF EMPLOYMENT [None]
  - PROGESTERONE ABNORMAL [None]
